FAERS Safety Report 21889976 (Version 3)
Quarter: 2023Q1

REPORT INFORMATION
  Report Type: Spontaneous
  Country: US (occurrence: US)
  Receive Date: 20230120
  Receipt Date: 20230228
  Transmission Date: 20230418
  Serious: No
  Sender: FDA-Public Use
  Company Number: US-LUPIN PHARMACEUTICALS INC.-2023-00343

PATIENT
  Sex: Female

DRUGS (1)
  1. DAYSEE [Suspect]
     Active Substance: ETHINYL ESTRADIOL\LEVONORGESTREL
     Indication: Product used for unknown indication
     Dosage: UNK, EVERY MORNING
     Route: 065

REACTIONS (3)
  - Emotional disorder [Unknown]
  - Inappropriate schedule of product administration [Unknown]
  - Product packaging issue [Unknown]
